FAERS Safety Report 4484500-4 (Version None)
Quarter: 2004Q3

REPORT INFORMATION
  Report Type: 
  Country: None (occurrence: None)
  Receive Date: 20040921
  Receipt Date: 20040108
  Transmission Date: 20050211
  Serious: Yes (Hospitalization)
  Sender: FDA-Public Use
  Company Number: 163-20785-04010167

PATIENT
  Age: 73 Year
  Sex: Male

DRUGS (1)
  1. THALOMID [Suspect]
     Indication: MYELODYSPLASTIC SYNDROME
     Dosage: 200 MG, AT BEDTIME, ORAL
     Route: 048
     Dates: start: 20031120

REACTIONS (3)
  - ASTHENIA [None]
  - FATIGUE [None]
  - RASH GENERALISED [None]
